FAERS Safety Report 16725500 (Version 1)
Quarter: 2019Q4

REPORT INFORMATION
  Report Type: Spontaneous
  Country: US (occurrence: US)
  Receive Date: 20190820
  Receipt Date: 20190820
  Transmission Date: 20200122
  Serious: Yes (Hospitalization)
  Sender: FDA-Public Use
  Company Number: None

PATIENT
  Age: 48 Year
  Weight: 86.4 kg

DRUGS (4)
  1. VINBLASTINE [Concomitant]
     Active Substance: VINBLASTINE
     Dates: start: 20190515
  2. DACARBAZINE. [Concomitant]
     Active Substance: DACARBAZINE
     Dates: start: 20190515
  3. ADCETRIS [Suspect]
     Active Substance: BRENTUXIMAB VEDOTIN
     Indication: HODGKIN^S DISEASE
     Dosage: ?          OTHER FREQUENCY:Q14 DAYS WITH AVD;?
     Route: 041
     Dates: start: 20190515, end: 20190710
  4. DOXORUBICIN [Concomitant]
     Active Substance: DOXORUBICIN
     Dates: start: 20190515

REACTIONS (5)
  - Hypoxia [None]
  - Dyspnoea [None]
  - Pyrexia [None]
  - Cough [None]
  - Lung infiltration [None]

NARRATIVE: CASE EVENT DATE: 20190722
